FAERS Safety Report 13852560 (Version 4)
Quarter: 2018Q2

REPORT INFORMATION
  Report Type: Spontaneous
  Country: US (occurrence: US)
  Receive Date: 20170809
  Receipt Date: 20180628
  Transmission Date: 20180711
  Serious: No
  Sender: FDA-Public Use
  Company Number: US-PFIZER INC-2017341639

PATIENT
  Age: 68 Year
  Sex: Male

DRUGS (5)
  1. SUTENT [Suspect]
     Active Substance: SUNITINIB MALATE
     Indication: RENAL CANCER
     Dosage: 50 MG, CYCLIC (EVERY DAY FOR 3 WEEKS ON AND 3 WEEKS OFF)
     Route: 048
     Dates: start: 20170721, end: 201707
  2. TRAMADOL HCL [Concomitant]
     Active Substance: TRAMADOL HYDROCHLORIDE
     Dosage: 50 MG, UNK
  3. SUTENT [Suspect]
     Active Substance: SUNITINIB MALATE
     Dosage: 37.5 MG, CYCLIC (EVERY DAY FOR 3 WEEKS ON, THEN 3 WEEKS OFF)
     Route: 048
     Dates: start: 20170725
  4. LISINOPRIL. [Concomitant]
     Active Substance: LISINOPRIL
     Dosage: 10 MG, UNK
  5. HYDROCODONE [Concomitant]
     Active Substance: HYDROCODONE
     Dosage: UNK

REACTIONS (7)
  - Ageusia [Not Recovered/Not Resolved]
  - Pain in extremity [Not Recovered/Not Resolved]
  - Stomatitis [Unknown]
  - Glossodynia [Not Recovered/Not Resolved]
  - Tongue discomfort [Not Recovered/Not Resolved]
  - Oral pain [Not Recovered/Not Resolved]
  - Fatigue [Not Recovered/Not Resolved]
